FAERS Safety Report 5682437-6 (Version None)
Quarter: 2008Q1

REPORT INFORMATION
  Report Type: 
  Country: None (occurrence: None)
  Receive Date: 20080326
  Receipt Date: 20080326
  Transmission Date: 20080703
  Serious: Yes (Hospitalization)
  Sender: FDA-Public Use
  Company Number: None

PATIENT
  Sex: Male
  Weight: 78.4 kg

DRUGS (2)
  1. TAXOTERE [Suspect]
     Dosage: 150 MG
  2. PREDNISONE TAB [Suspect]
     Dosage: 115 MG

REACTIONS (6)
  - HYPERGLYCAEMIA [None]
  - HYPOKALAEMIA [None]
  - LYMPHOPENIA [None]
  - NEUTROPENIA [None]
  - PHARYNGOLARYNGEAL PAIN [None]
  - PNEUMONIA [None]
